FAERS Safety Report 8578024-2 (Version None)
Quarter: 2012Q3

REPORT INFORMATION
  Report Type: 
  Country: None (occurrence: None)
  Receive Date: 20120808
  Receipt Date: 20120806
  Transmission Date: 20120928
  Serious: Yes (Other)
  Sender: FDA-Public Use
  Company Number: US-AMGEN-USASP2011060359

PATIENT
  Age: 70 Year
  Sex: Female
  Weight: 78.458 kg

DRUGS (3)
  1. ENBREL [Suspect]
     Dosage: 50 MG, QWK
     Route: 058
     Dates: start: 20110601
  2. ENBREL [Suspect]
     Indication: RHEUMATOID ARTHRITIS
     Dosage: 50 MG, QWK
     Route: 058
  3. NORCO [Concomitant]
     Dosage: UNK UNK, PRN
     Route: 048

REACTIONS (2)
  - HUMERUS FRACTURE [None]
  - FALL [None]
